FAERS Safety Report 5803764-5 (Version None)
Quarter: 2008Q3

REPORT INFORMATION
  Report Type: 
  Country: None (occurrence: None)
  Receive Date: 20080707
  Receipt Date: 20080624
  Transmission Date: 20090109
  Serious: Yes (Hospitalization)
  Sender: FDA-Public Use
  Company Number: 08P-028-0459752-00

PATIENT
  Age: 12 Month
  Sex: Male

DRUGS (5)
  1. SYNAGIS [Suspect]
     Indication: ANTIVIRAL PROPHYLAXIS
     Dosage: 134 MG (134 MG, ONCE) INTRAMUSCULAR; 141 MG (141 MG, ONCE) INTRAMUSCULAR; 143 MG (143 MG, ONCE) INTR
     Route: 030
     Dates: start: 20071219, end: 20071219
  2. SYNAGIS [Suspect]
     Indication: ANTIVIRAL PROPHYLAXIS
     Dosage: 134 MG (134 MG, ONCE) INTRAMUSCULAR; 141 MG (141 MG, ONCE) INTRAMUSCULAR; 143 MG (143 MG, ONCE) INTR
     Route: 030
     Dates: start: 20080109, end: 20080109
  3. SYNAGIS [Suspect]
     Indication: ANTIVIRAL PROPHYLAXIS
     Dosage: 134 MG (134 MG, ONCE) INTRAMUSCULAR; 141 MG (141 MG, ONCE) INTRAMUSCULAR; 143 MG (143 MG, ONCE) INTR
     Route: 030
     Dates: start: 20080206, end: 20080206
  4. FERROUS SULFATE TAB [Concomitant]
  5. HALIBORANGE [Concomitant]

REACTIONS (2)
  - EYE INFECTION [None]
  - INFECTION [None]
